FAERS Safety Report 4368492-4 (Version None)
Quarter: 2004Q2

REPORT INFORMATION
  Report Type: 
  Country: None (occurrence: None)
  Receive Date: 20040602
  Receipt Date: 20031117
  Transmission Date: 20050107
  Serious: No
  Sender: FDA-Public Use
  Company Number: US-GLAXOSMITHKLINE-A0439978A

PATIENT
  Age: 8 Month
  Sex: Female
  Weight: 7.3 kg

DRUGS (1)
  1. AUGMENTIN ES-600 [Suspect]
     Indication: ILL-DEFINED DISORDER
     Dosage: 1TSP TWICE PER DAY
     Route: 048

REACTIONS (2)
  - DIARRHOEA [None]
  - PRESCRIBED OVERDOSE [None]
